FAERS Safety Report 9910171 (Version 1)
Quarter: 2014Q1

REPORT INFORMATION
  Report Type: Report from Study
  Country: US (occurrence: US)
  Receive Date: 20140219
  Receipt Date: 20140219
  Transmission Date: 20141002
  Serious: Yes (Other)
  Sender: FDA-Public Use
  Company Number: US-ABBVIE-14P-163-1200210-00

PATIENT
  Age: 56 Year
  Sex: Female
  Weight: 53.57 kg

DRUGS (10)
  1. HUMIRA [Suspect]
     Indication: CROHN^S DISEASE
     Route: 058
  2. HUMIRA [Suspect]
     Route: 058
     Dates: start: 201312
  3. PAROXETINE [Concomitant]
     Indication: DEPRESSION
  4. FERROUS SULFATE [Concomitant]
     Indication: VITAMIN SUPPLEMENTATION
  5. ALPRAZOLAM [Concomitant]
     Indication: DEPRESSION
  6. AZATHIOPRINE [Concomitant]
     Indication: CROHN^S DISEASE
  7. AMITRIPTYLINE [Concomitant]
     Indication: INSOMNIA
  8. SEROQUEL [Concomitant]
     Indication: INSOMNIA
  9. OXYCODONE [Concomitant]
     Indication: CROHN^S DISEASE
     Dosage: PRN
  10. OXYCODONE [Concomitant]
     Indication: PAIN

REACTIONS (3)
  - Haematochezia [Unknown]
  - Large intestine polyp [Not Recovered/Not Resolved]
  - Drug ineffective [Not Recovered/Not Resolved]
